FAERS Safety Report 6898268-5 (Version None)
Quarter: 2010Q3

REPORT INFORMATION
  Report Type: 
  Country: None (occurrence: None)
  Receive Date: 20100729
  Receipt Date: 20100721
  Transmission Date: 20110219
  Serious: Yes (Hospitalization)
  Sender: FDA-Public Use
  Company Number: 015901

PATIENT
  Sex: Female
  Weight: 91 kg

DRUGS (14)
  1. KEPPRA [Suspect]
     Indication: EPILEPSY
     Dosage: (2000 MG BID ORAL), (1000 MG BID ORAL)
     Route: 048
     Dates: start: 20090301, end: 20091017
  2. KEPPRA [Suspect]
     Indication: EPILEPSY
     Dosage: (2000 MG BID ORAL), (1000 MG BID ORAL)
     Route: 048
     Dates: start: 20091021
  3. E2007/PLACEBO (INVESTIGATIONAL DRUG) (INVESTIGATIONAL DRUG) [Suspect]
     Indication: PARTIAL SEIZURES
     Dosage: (6 DF, DOUBLE BLIND ORAL), (6 DF, DOUBLE BLIND ORAL)
     Route: 048
     Dates: start: 20091005, end: 20091019
  4. E2007/PLACEBO (INVESTIGATIONAL DRUG) (INVESTIGATIONAL DRUG) [Suspect]
     Indication: PARTIAL SEIZURES
     Dosage: (6 DF, DOUBLE BLIND ORAL), (6 DF, DOUBLE BLIND ORAL)
     Route: 048
     Dates: start: 20091021, end: 20100212
  5. TEGRETOL [Concomitant]
     Indication: CONVULSION
     Dosage: (1200 MG QD ORAL), (1200 MG QD ORAL)
     Route: 048
     Dates: start: 20070101, end: 20091017
  6. TEGRETOL [Concomitant]
     Indication: CONVULSION
     Dosage: (1200 MG QD ORAL), (1200 MG QD ORAL)
     Route: 048
     Dates: start: 20091021
  7. NEURONTIN [Concomitant]
     Indication: EPILEPSY
     Dosage: (1600 MG QID ORAL), (400 MG QID ORAL)
     Route: 048
     Dates: start: 20070101, end: 20091017
  8. NEURONTIN [Concomitant]
     Indication: EPILEPSY
     Dosage: (1600 MG QID ORAL), (400 MG QID ORAL)
     Route: 048
     Dates: start: 20091021
  9. ATENOLOL [Concomitant]
  10. DICLOFENAC SODIUM [Concomitant]
  11. LEVOTHYROXINE SODIUM [Concomitant]
  12. VALSARTAN [Concomitant]
  13. VYTORIN [Concomitant]
  14. POTASSIUM CHLORIDE [Concomitant]

REACTIONS (3)
  - DRUG DOSE OMISSION [None]
  - STATUS EPILEPTICUS [None]
  - TREATMENT NONCOMPLIANCE [None]
